FAERS Safety Report 20321044 (Version 1)
Quarter: 2022Q1

REPORT INFORMATION
  Report Type: Report from Study
  Country: CA (occurrence: CA)
  Receive Date: 20220111
  Receipt Date: 20220111
  Transmission Date: 20220423
  Serious: Yes (Hospitalization, Other)
  Sender: FDA-Public Use
  Company Number: CA-JNJFOC-20210743762

PATIENT
  Age: 45 Year
  Sex: Female
  Weight: 118.04 kg

DRUGS (3)
  1. STELARA [Suspect]
     Active Substance: USTEKINUMAB
     Indication: Crohn^s disease
     Dosage: THERAPY DATE IS 16/SEP/2021
     Route: 058
     Dates: start: 20210205
  2. STELARA [Suspect]
     Active Substance: USTEKINUMAB
  3. PREDNISONE [Concomitant]
     Active Substance: PREDNISONE
     Indication: Product used for unknown indication
     Dosage: TAPER BY 5MG Q WEEKLY
     Route: 065

REACTIONS (7)
  - Hepatic cirrhosis [Unknown]
  - Hepatic encephalopathy [Not Recovered/Not Resolved]
  - Blood magnesium decreased [Unknown]
  - Renal failure [Unknown]
  - Blood potassium decreased [Unknown]
  - Hepatic steatosis [Unknown]
  - Urinary tract infection [Unknown]

NARRATIVE: CASE EVENT DATE: 20210720
